FAERS Safety Report 14082269 (Version 11)
Quarter: 2017Q4

REPORT INFORMATION
  Report Type: Report from Study
  Country: CZ (occurrence: CZ)
  Receive Date: 20171013
  Receipt Date: 20171218
  Transmission Date: 20180321
  Serious: Yes (Hospitalization)
  Sender: FDA-Public Use
  Company Number: CZ-PFIZER INC-2017387394

PATIENT
  Age: 54 Year
  Sex: Male
  Weight: 68 kg

DRUGS (6)
  1. PEMBROLIZUMAB. [Suspect]
     Active Substance: PEMBROLIZUMAB
     Indication: METASTATIC RENAL CELL CARCINOMA
     Dosage: 200 MG, EVERY 3 WEEKS (VOLUME OF INFUSION 100 ML)
     Route: 042
     Dates: start: 20170721, end: 20170721
  2. NOLPAZA [Concomitant]
     Active Substance: PANTOPRAZOLE SODIUM
     Dosage: 40 MG, UNK
     Route: 048
     Dates: start: 201705, end: 20170901
  3. IBANDRONIC ACID. [Concomitant]
     Active Substance: IBANDRONIC ACID
     Dosage: 6 MG, UNK
     Route: 048
     Dates: start: 20170622
  4. AXITINIB [Suspect]
     Active Substance: AXITINIB
     Indication: METASTATIC RENAL CELL CARCINOMA
     Dosage: 5 MG, TWICE DAILY
     Route: 048
     Dates: start: 20170721, end: 20170830
  5. PEMBROLIZUMAB. [Suspect]
     Active Substance: PEMBROLIZUMAB
     Dosage: 200 MG, EVERY 3 WEEKS (CYCLE 2)
     Route: 042
     Dates: start: 20170811, end: 20170811
  6. AXITINIB [Suspect]
     Active Substance: AXITINIB
     Dosage: 5 MG, SINGLE (CYCLE 2)
     Route: 048
     Dates: start: 20170831, end: 20170831

REACTIONS (1)
  - Hepatitis [Recovered/Resolved]

NARRATIVE: CASE EVENT DATE: 20170901
